FAERS Safety Report 24443994 (Version 2)
Quarter: 2024Q4

REPORT INFORMATION
  Report Type: Report from Study
  Country: CA (occurrence: CA)
  Receive Date: 20241016
  Receipt Date: 20241017
  Transmission Date: 20250114
  Serious: No
  Sender: ROCHE
  Company Number: CA-ROCHE-2691865

PATIENT
  Age: 73 Year
  Sex: Female

DRUGS (26)
  1. RITUXAN [Suspect]
     Active Substance: RITUXIMAB
     Indication: Rheumatoid arthritis
     Dosage: DAY 1 AND 15?DAY 15 CANCELLED DUE TO COLD.
     Route: 042
     Dates: start: 20180523
  2. RITUXAN [Suspect]
     Active Substance: RITUXIMAB
     Route: 042
  3. RITUXAN [Suspect]
     Active Substance: RITUXIMAB
     Route: 042
  4. CLONAZEPAM [Concomitant]
     Active Substance: CLONAZEPAM
  5. METFORMIN [Concomitant]
     Active Substance: METFORMIN HYDROCHLORIDE
  6. PLAVIX [Concomitant]
     Active Substance: CLOPIDOGREL BISULFATE
  7. ACETAMINOPHEN [Concomitant]
     Active Substance: ACETAMINOPHEN
     Indication: Premedication
     Route: 048
     Dates: start: 20180523
  8. ALENDRONATE [Concomitant]
     Active Substance: ALENDRONATE SODIUM
  9. BETAMETHASONE [Concomitant]
     Active Substance: BETAMETHASONE
  10. CITALOPRAM [Concomitant]
     Active Substance: CITALOPRAM
  11. DIPHENHYDRAMINE [Concomitant]
     Active Substance: DIPHENHYDRAMINE
     Indication: Premedication
     Route: 048
     Dates: start: 20180523
  12. FOLIC ACID [Concomitant]
     Active Substance: FOLIC ACID
  13. LYRICA [Concomitant]
     Active Substance: PREGABALIN
  14. METHYLPREDNISOLONE [Concomitant]
     Active Substance: METHYLPREDNISOLONE
     Indication: Premedication
     Route: 042
     Dates: start: 20180523
  15. OMEPRAZOLE [Concomitant]
     Active Substance: OMEPRAZOLE
  16. OXYGEN [Concomitant]
     Active Substance: OXYGEN
     Dosage: THERAPY
  17. PRAMIPEXOLE [Concomitant]
     Active Substance: PRAMIPEXOLE\PRAMIPEXOLE DIHYDROCHLORIDE
  18. RAMIPRIL [Concomitant]
     Active Substance: RAMIPRIL
  19. ZOPICLONE [Concomitant]
     Active Substance: ZOPICLONE
  20. ATORVASTATIN [Concomitant]
     Active Substance: ATORVASTATIN
  21. FERAMAX [Concomitant]
     Active Substance: IRON\POLYSACCHARIDES
  22. FUROSEMIDE [Concomitant]
     Active Substance: FUROSEMIDE
  23. MIRTAZAPINE [Concomitant]
     Active Substance: MIRTAZAPINE
  24. SULFASALAZINE [Concomitant]
     Active Substance: SULFASALAZINE
  25. VENTOLIN [Concomitant]
     Active Substance: ALBUTEROL SULFATE
  26. ZOPICLONE [Concomitant]
     Active Substance: ZOPICLONE

REACTIONS (3)
  - Nasopharyngitis [Not Recovered/Not Resolved]
  - Lower respiratory tract infection [Recovering/Resolving]
  - Haemoptysis [Unknown]

NARRATIVE: CASE EVENT DATE: 20200101
